FAERS Safety Report 8939084 (Version 1)
Quarter: 2012Q4

REPORT INFORMATION
  Report Type: Report from Study
  Country: CA (occurrence: CA)
  Receive Date: 20121203
  Receipt Date: 20121203
  Transmission Date: 20130627
  Serious: Yes (Other)
  Sender: FDA-Public Use
  Company Number: CA-JNJFOC-20121111782

PATIENT
  Age: 34 Year
  Sex: Female
  Weight: 74.39 kg

DRUGS (7)
  1. REMICADE [Suspect]
     Indication: CROHN^S DISEASE
     Route: 042
     Dates: start: 20111102
  2. REMICADE [Suspect]
     Indication: CROHN^S DISEASE
     Route: 042
     Dates: start: 20121121
  3. BENADRYL [Concomitant]
     Indication: PREMEDICATION
     Route: 065
  4. MEZAVANT [Concomitant]
     Route: 065
  5. PANTOLOC [Concomitant]
     Route: 065
  6. ALVESCO [Concomitant]
     Dosage: 2 puffs- 120 microgram/puff
     Route: 065
  7. VITAMIN B12 [Concomitant]
     Dosage: 1000 microgram
     Route: 030

REACTIONS (3)
  - Tachycardia [Not Recovered/Not Resolved]
  - Palpitations [Not Recovered/Not Resolved]
  - Hyperhidrosis [Not Recovered/Not Resolved]
